FAERS Safety Report 6911808-2 (Version None)
Quarter: 2010Q3

REPORT INFORMATION
  Report Type: 
  Country: None (occurrence: None)
  Receive Date: 20100806
  Receipt Date: 20070820
  Transmission Date: 20110219
  Serious: No
  Sender: FDA-Public Use
  Company Number: US-PFIZER INC-2007069801

PATIENT
  Sex: Male
  Weight: 100 kg

DRUGS (11)
  1. DETROL LA [Suspect]
     Indication: POLLAKIURIA
     Dates: start: 20070601, end: 20070818
  2. CYMBALTA [Interacting]
     Indication: DEPRESSION
     Dates: start: 20070701, end: 20070802
  3. GLIMEPIRIDE [Concomitant]
     Indication: DIABETES MELLITUS
  4. METFORMIN HCL [Concomitant]
     Indication: DIABETES MELLITUS
  5. VITAMIN TAB [Concomitant]
  6. FLUOXETINE [Concomitant]
     Indication: DEPRESSION
  7. AMBIEN [Concomitant]
     Indication: SLEEP DISORDER
  8. ACIPHEX [Concomitant]
     Indication: GASTROOESOPHAGEAL REFLUX DISEASE
  9. IMIPRAMINE [Concomitant]
  10. LIPITOR [Concomitant]
     Indication: BLOOD CHOLESTEROL
  11. TRAMADOL HYDROCHLORIDE [Concomitant]
     Indication: BACK PAIN

REACTIONS (7)
  - DRUG INTERACTION [None]
  - FATIGUE [None]
  - HEADACHE [None]
  - NAUSEA [None]
  - SOMNOLENCE [None]
  - VISION BLURRED [None]
  - VISUAL IMPAIRMENT [None]
